FAERS Safety Report 7409294-1 (Version None)
Quarter: 2011Q2

REPORT INFORMATION
  Report Type: 
  Country: None (occurrence: None)
  Receive Date: 20110412
  Receipt Date: 20110401
  Transmission Date: 20111010
  Serious: Yes (Death, Life-Threatening)
  Sender: FDA-Public Use
  Company Number: B0710211A

PATIENT
  Sex: Male

DRUGS (17)
  1. METOCLOPRAMIDE [Suspect]
     Dosage: 3UNIT PER DAY
     Route: 042
     Dates: start: 20110305, end: 20110306
  2. PIPERACILLIN AND TAZOBACTAM [Suspect]
     Dosage: 4G THREE TIMES PER DAY
     Route: 042
     Dates: start: 20110304, end: 20110306
  3. ETOPOSIDE [Suspect]
     Dosage: 900MG PER DAY
     Route: 042
     Dates: start: 20110301, end: 20110304
  4. AMIKACIN [Suspect]
     Dosage: 1300MG PER DAY
     Route: 042
     Dates: start: 20110304, end: 20110305
  5. NEXIUM [Concomitant]
     Route: 065
  6. ACICLOVIR [Suspect]
     Dosage: 250MG THREE TIMES PER DAY
     Route: 042
     Dates: start: 20110305, end: 20110306
  7. UROMITEXAN [Suspect]
     Dosage: 800MG PER DAY
     Route: 065
     Dates: start: 20110301, end: 20110304
  8. LYRICA [Concomitant]
     Route: 065
  9. SOLUPRED [Concomitant]
     Route: 065
  10. ARIXTRA [Suspect]
     Route: 058
     Dates: start: 20110226, end: 20110306
  11. ENDOXAN [Suspect]
     Dosage: 3200MG PER DAY
     Route: 042
     Dates: start: 20110301, end: 20110304
  12. CARBOPLATIN [Suspect]
     Dosage: 899MG PER DAY
     Route: 042
     Dates: start: 20110301, end: 20110304
  13. MORPHINE [Suspect]
     Dosage: 20MG UNKNOWN
     Route: 042
     Dates: start: 20110305, end: 20110306
  14. ETHYOL [Suspect]
     Dosage: 2UNIT PER DAY
     Route: 042
     Dates: start: 20110301, end: 20110304
  15. KEPPRA [Concomitant]
     Route: 065
  16. GENTAMICIN [Suspect]
     Dosage: 100MG THREE TIMES PER DAY
     Route: 048
     Dates: start: 20110302, end: 20110306
  17. RIVOTRIL [Concomitant]
     Route: 065

REACTIONS (9)
  - HYPOTENSION [None]
  - VENTRICULAR DYSFUNCTION [None]
  - CARDIAC ARREST [None]
  - TACHYCARDIA [None]
  - ANURIA [None]
  - CARDIAC TAMPONADE [None]
  - MYOPERICARDITIS [None]
  - SEPSIS [None]
  - DIASTOLIC DYSFUNCTION [None]
